FAERS Safety Report 7816879-7 (Version None)
Quarter: 2011Q4

REPORT INFORMATION
  Report Type: 
  Country: None (occurrence: None)
  Receive Date: 20111017
  Receipt Date: 20111006
  Transmission Date: 20120403
  Serious: No
  Sender: FDA-Public Use
  Company Number: MX-GENZYME-CAMP-1001884

PATIENT
  Sex: Female
  Weight: 82 kg

DRUGS (2)
  1. ALEMTUZUMAB [Suspect]
     Indication: MULTIPLE SCLEROSIS
     Dosage: 12 MG, QD
     Dates: start: 20100816, end: 20100818
  2. METHYLPREDNISOLONE [Concomitant]
     Indication: MULTIPLE SCLEROSIS
     Dosage: 1.0 G, QD
     Dates: start: 20100816, end: 20100818

REACTIONS (1)
  - PRIMARY HYPOTHYROIDISM [None]
